FAERS Safety Report 13043581 (Version 1)
Quarter: 2016Q4

REPORT INFORMATION
  Report Type: Spontaneous
  Country: US (occurrence: US)
  Receive Date: 20161220
  Receipt Date: 20161220
  Transmission Date: 20170207
  Serious: No
  Sender: FDA-Public Use
  Company Number: US-TEVA-666826USA

PATIENT
  Age: 61 Year
  Sex: Female
  Weight: 62.65 kg

DRUGS (1)
  1. METRONIDAZOLE. [Suspect]
     Active Substance: METRONIDAZOLE
     Indication: LYME DISEASE
     Route: 065
     Dates: start: 20160601, end: 20160602

REACTIONS (3)
  - Muscular weakness [Unknown]
  - Musculoskeletal disorder [Unknown]
  - Gait disturbance [Unknown]

NARRATIVE: CASE EVENT DATE: 201606
